FAERS Safety Report 10687257 (Version 1)
Quarter: 2014Q4

REPORT INFORMATION
  Report Type: Spontaneous
  Country: FR (occurrence: None)
  Receive Date: 20141230
  Receipt Date: 20141230
  Transmission Date: 20150529
  Serious: Yes (Hospitalization)
  Sender: FDA-Public Use
  Company Number: 2014FE03452

PATIENT
  Age: 80 Year
  Sex: Female

DRUGS (5)
  1. MINIRIN [Suspect]
     Active Substance: DESMOPRESSIN ACETATE
     Indication: DIABETES INSIPIDUS
  2. LEVOTHYROX (LEVOTHYROXINE SODIUM) [Suspect]
     Active Substance: LEVOTHYROXINE SODIUM
  3. SIMVASTATIN (SIMVASTATIN) [Suspect]
     Active Substance: SIMVASTATIN
  4. LERCANIDIPINE (LERCANIDIPINE) [Suspect]
     Active Substance: LERCANIDIPINE
  5. HYDROCORTISONE (HYDROCORTISONE) [Suspect]
     Active Substance: HYDROCORTISONE
     Indication: PRODUCT USED FOR UNKNOWN INDICATION
     Dosage: 3 DF

REACTIONS (2)
  - Injury [None]
  - Hyponatraemia [None]

NARRATIVE: CASE EVENT DATE: 2014
